FAERS Safety Report 11025404 (Version 1)
Quarter: 2015Q2

REPORT INFORMATION
  Report Type: Spontaneous
  Country: IT (occurrence: IT)
  Receive Date: 20150414
  Receipt Date: 20150414
  Transmission Date: 20150821
  Serious: Yes (Other)
  Sender: FDA-Public Use
  Company Number: IT-SUN PHARMACEUTICAL INDUSTRIES LTD-2012R1-67241

PATIENT
  Age: 41 Year
  Sex: Male

DRUGS (2)
  1. FLUOXETINE [Suspect]
     Active Substance: FLUOXETINE\FLUOXETINE HYDROCHLORIDE
     Indication: DEPRESSION
     Dosage: 20 MG, BID
     Route: 065
     Dates: start: 199602
  2. ALPRAZOLAM. [Suspect]
     Active Substance: ALPRAZOLAM
     Indication: DEPRESSION
     Dosage: 0.25 MG, BID
     Route: 065
     Dates: start: 199602

REACTIONS (9)
  - Treatment noncompliance [Unknown]
  - Photosensitivity reaction [Unknown]
  - Joint swelling [Unknown]
  - Hyperhidrosis [Unknown]
  - Arthralgia [Unknown]
  - Somnolence [Unknown]
  - Hypertension [Unknown]
  - Tremor [Unknown]
  - Weight decreased [Unknown]
